FAERS Safety Report 6593578-3 (Version None)
Quarter: 2010Q1

REPORT INFORMATION
  Report Type: 
  Country: None (occurrence: None)
  Receive Date: 20100222
  Receipt Date: 20090820
  Transmission Date: 20100710
  Serious: No
  Sender: FDA-Public Use
  Company Number: US-BRISTOL-MYERS SQUIBB COMPANY-14735542

PATIENT
  Age: 65 Year
  Sex: Female
  Weight: 59 kg

DRUGS (9)
  1. ORENCIA [Suspect]
     Indication: RHEUMATOID ARTHRITIS
     Dosage: 3 VIALS AT 250 MG EACH. LAST INFUSION ON 22JUL09
     Route: 042
     Dates: start: 20071114
  2. PREDNISONE [Concomitant]
  3. LISINOPRIL [Concomitant]
  4. XANAX [Concomitant]
  5. ZYRTEC [Concomitant]
  6. COLACE [Concomitant]
  7. MIRALAX [Concomitant]
  8. GAS-X [Concomitant]
  9. PEPCID [Concomitant]
     Dosage: OVER-THE-COUNTER

REACTIONS (4)
  - BLISTER [None]
  - POLYP [None]
  - RASH [None]
  - SKIN EXFOLIATION [None]
